FAERS Safety Report 14017717 (Version 1)
Quarter: 2017Q3

REPORT INFORMATION
  Report Type: Spontaneous
  Country: US (occurrence: US)
  Receive Date: 20170927
  Receipt Date: 20170927
  Transmission Date: 20171128
  Serious: No
  Sender: FDA-Public Use
  Company Number: US-TEIKOKU PHARMA USA-TPU2017-00592

PATIENT
  Sex: Male
  Weight: 164.8 kg

DRUGS (2)
  1. LIDOCAINE PATCH [Suspect]
     Active Substance: LIDOCAINE
     Indication: PAIN
     Dosage: APPLY 1 PATCH TO EACH KNEE AND SOMETIMES ONE TO THE BACK, ON FOR AT LEAST 12 HOURS, UP TO 15 HOURS
     Route: 061
  2. 14 DIFFERENT KINDS OF PILLS [Concomitant]

REACTIONS (2)
  - Product use issue [Recovered/Resolved]
  - Incorrect drug administration duration [Unknown]
